FAERS Safety Report 16806707 (Version 4)
Quarter: 2020Q4

REPORT INFORMATION
  Report Type: Spontaneous
  Country: US (occurrence: US)
  Receive Date: 20190913
  Receipt Date: 20201111
  Transmission Date: 20210113
  Serious: Yes (Hospitalization)
  Sender: FDA-Public Use
  Company Number: US-PFIZER INC-2019394072

PATIENT
  Age: 75 Year
  Sex: Male
  Weight: 77.1 kg

DRUGS (2)
  1. VYNDAQEL [Suspect]
     Active Substance: TAFAMIDIS MEGLUMINE
     Indication: CARDIAC AMYLOIDOSIS
  2. VYNDAQEL [Suspect]
     Active Substance: TAFAMIDIS MEGLUMINE
     Indication: AMYLOIDOSIS
     Dosage: 80 MG, 1X/DAY (ONCE DAILY A.M.)
     Dates: start: 20190905

REACTIONS (6)
  - Weight decreased [Not Recovered/Not Resolved]
  - Abdominal discomfort [Unknown]
  - Abdominal pain upper [Unknown]
  - Influenza [Unknown]
  - Somnolence [Not Recovered/Not Resolved]
  - Malaise [Unknown]

NARRATIVE: CASE EVENT DATE: 20190905
